FAERS Safety Report 8764250 (Version 3)
Quarter: 2012Q4

REPORT INFORMATION
  Report Type: 
  Country: BR (occurrence: BR)
  Receive Date: 20120831
  Receipt Date: 20121022
  Transmission Date: 20130627
  Serious: Yes (Other)
  Sender: FDA-Public Use
  Company Number: BR-PFIZER INC-2012167579

PATIENT
  Age: 68 Year
  Sex: Male
  Weight: 57 kg

DRUGS (6)
  1. CAVERJECT [Suspect]
     Indication: ERECTILE DYSFUNCTION
     Dosage: 10 ug, as needed
     Route: 017
     Dates: start: 201204
  2. CAVERJECT [Suspect]
     Dosage: 20 ug, as needed
     Route: 017
     Dates: start: 20120817
  3. VIAGRA [Suspect]
     Indication: ERECTILE DYSFUNCTION
     Route: 048
  4. CAPTOPRIL [Concomitant]
     Indication: HYPERTENSION
     Dosage: UNK
  5. FUROSEMIDE [Concomitant]
     Indication: HYPERTENSION
     Dosage: UNK
  6. OMEPRAZOL [Concomitant]
     Indication: GASTRIC DISORDER
     Dosage: UNK

REACTIONS (9)
  - Perineal pain [Recovered/Resolved]
  - Urethral pain [Recovered/Resolved]
  - Penile pain [Recovered/Resolved]
  - Male orgasmic disorder [Recovered/Resolved]
  - Injection site pain [Unknown]
  - Headache [Recovered/Resolved]
  - Erection increased [Unknown]
  - Drug ineffective [Unknown]
  - Drug effect incomplete [Recovered/Resolved]
